FAERS Safety Report 23257428 (Version 1)
Quarter: 2023Q4

REPORT INFORMATION
  Report Type: Spontaneous
  Country: FR (occurrence: FR)
  Receive Date: 20231204
  Receipt Date: 20231204
  Transmission Date: 20240110
  Serious: Yes (Hospitalization)
  Sender: FDA-Public Use
  Company Number: None

PATIENT
  Age: 63 Year
  Sex: Female
  Weight: 71 kg

DRUGS (11)
  1. OXALIPLATIN [Suspect]
     Active Substance: OXALIPLATIN
     Indication: Neuroendocrine tumour
     Dates: start: 20230811, end: 20230811
  2. LANREOTIDE ACETATE [Concomitant]
     Active Substance: LANREOTIDE ACETATE
  3. LEVOTHYROXINE [Concomitant]
     Active Substance: LEVOTHYROXINE
  4. EMEND [Concomitant]
     Active Substance: APREPITANT
  5. PANTOPRAZOLE [Concomitant]
     Active Substance: PANTOPRAZOLE
  6. AMLODIPINE [Concomitant]
     Active Substance: AMLODIPINE BESYLATE
  7. GEMCITABINE [Concomitant]
     Active Substance: GEMCITABINE
     Indication: Neuroendocrine tumour
     Dates: start: 20230727, end: 20230727
  8. METOCLOPRAMIDE [Concomitant]
     Active Substance: METOCLOPRAMIDE
  9. EMEND [Concomitant]
     Active Substance: APREPITANT
  10. OXALIPLATIN [Suspect]
     Active Substance: OXALIPLATIN
     Indication: Neuroendocrine tumour
     Dates: start: 20230727, end: 20230727
  11. GEMCITABINE [Concomitant]
     Active Substance: GEMCITABINE
     Indication: Neuroendocrine tumour
     Dates: start: 20230811, end: 20230811

REACTIONS (1)
  - Anaphylactoid reaction [Recovered/Resolved]

NARRATIVE: CASE EVENT DATE: 20230811
